FAERS Safety Report 4809872-X (Version None)
Quarter: 2005Q4

REPORT INFORMATION
  Report Type: 
  Country: None (occurrence: None)
  Receive Date: 20051024
  Receipt Date: 20051024
  Transmission Date: 20060501
  Serious: No
  Sender: FDA-Public Use
  Company Number: None

PATIENT
  Age: 57 Year
  Sex: Male

DRUGS (2)
  1. PEGINTERFERON ALPHA [Suspect]
     Dosage: 180MCG SC WEEKLY
     Route: 058
     Dates: start: 20050412, end: 20050812
  2. RIBAVIRIN [Suspect]
     Dosage: 600MG PO BID
     Route: 048
     Dates: start: 20050412, end: 20050812

REACTIONS (1)
  - LIVER FUNCTION TEST ABNORMAL [None]
